FAERS Safety Report 9215138 (Version 1)
Quarter: 2013Q2

REPORT INFORMATION
  Report Type: Spontaneous
  Country: US (occurrence: US)
  Receive Date: 20130405
  Receipt Date: 20130405
  Transmission Date: 20140414
  Serious: Yes (Other)
  Sender: FDA-Public Use
  Company Number: PHEH2013US007780

PATIENT
  Sex: Male

DRUGS (2)
  1. DIOVAN [Suspect]
     Dosage: 1 DF (160MG), UNK
  2. DIOVAN [Suspect]
     Dosage: 1 DF (320MG), DAILY

REACTIONS (2)
  - Osteoarthritis [Unknown]
  - Hypertension [Unknown]
